FAERS Safety Report 18531737 (Version 1)
Quarter: 2020Q4

REPORT INFORMATION
  Report Type: Spontaneous
  Country: US (occurrence: US)
  Receive Date: 20201123
  Receipt Date: 20201123
  Transmission Date: 20210114
  Serious: No
  Sender: FDA-Public Use
  Company Number: US-CIPLA LTD.-2020US04679

PATIENT

DRUGS (2)
  1. GABAPENTIN. [Suspect]
     Active Substance: GABAPENTIN
     Indication: BACK PAIN
     Dosage: 300 MILLIGRAM, QD (ONCE A DAY, AT NIGHT)
     Route: 048
     Dates: start: 20200702, end: 20200705
  2. METFORMIN [Concomitant]
     Active Substance: METFORMIN HYDROCHLORIDE
     Indication: DIABETES MELLITUS
     Dosage: 1000 MILLIGRAM, BID (TWICE A DAY) (MORNING AND EVENING)
     Route: 065

REACTIONS (7)
  - Eye pain [Recovering/Resolving]
  - Dizziness [Recovering/Resolving]
  - Hypoacusis [Recovering/Resolving]
  - Ear discomfort [Recovering/Resolving]
  - Off label use [Unknown]
  - Product use in unapproved indication [Unknown]
  - Somnolence [Recovering/Resolving]

NARRATIVE: CASE EVENT DATE: 20200702
